FAERS Safety Report 9757354 (Version 1)
Quarter: 2013Q4

REPORT INFORMATION
  Report Type: Spontaneous
  Country: US (occurrence: US)
  Receive Date: 20131214
  Receipt Date: 20131214
  Transmission Date: 20140711
  Serious: Yes (Other)
  Sender: FDA-Public Use
  Company Number: US-UCBSA-105688

PATIENT
  Sex: 0

DRUGS (1)
  1. CIMZIA [Suspect]
     Dosage: UNKNOWN DOSE

REACTIONS (1)
  - Psoriasis [Unknown]
